FAERS Safety Report 24125952 (Version 1)
Quarter: 2024Q3

REPORT INFORMATION
  Report Type: Other
  Country: KR (occurrence: KR)
  Receive Date: 20240723
  Receipt Date: 20240723
  Transmission Date: 20241016
  Serious: Yes (Hospitalization, Other)
  Sender: APPCO PHARMA
  Company Number: KR-Appco Pharma LLC-2159469

PATIENT
  Age: 40 Year
  Sex: Female

DRUGS (4)
  1. BACLOFEN [Suspect]
     Active Substance: BACLOFEN
     Indication: Headache
     Route: 065
  2. AFLOQUALONE [Concomitant]
     Active Substance: AFLOQUALONE
     Route: 065
  3. AMITRIPTYLINE HYDROCHLORIDE [Concomitant]
     Active Substance: AMITRIPTYLINE HYDROCHLORIDE
     Route: 065
  4. DEXIBUPROFEN [Concomitant]
     Active Substance: DEXIBUPROFEN
     Route: 065

REACTIONS (6)
  - Toxicity to various agents [Recovered/Resolved]
  - Coma [Recovered/Resolved]
  - Dyspnoea [Recovered/Resolved]
  - Mental impairment [Recovered/Resolved]
  - Confusional state [Recovered/Resolved]
  - Generalised tonic-clonic seizure [Recovered/Resolved]
